FAERS Safety Report 20776031 (Version 1)
Quarter: 2022Q2

REPORT INFORMATION
  Report Type: Spontaneous
  Country: US (occurrence: US)
  Receive Date: 20220502
  Receipt Date: 20220502
  Transmission Date: 20220721
  Serious: No
  Sender: FDA-Public Use
  Company Number: US-GE HEALTHCARE-2022CSU000962

PATIENT
  Age: 69 Year
  Sex: Male

DRUGS (6)
  1. OMNIPAQUE [Suspect]
     Active Substance: IOHEXOL
     Indication: Computerised tomogram
     Dosage: 1000 ML (12MGI/ML), SINGLE
     Route: 048
     Dates: start: 202201, end: 202201
  2. OMNIPAQUE [Suspect]
     Active Substance: IOHEXOL
     Indication: Hernia
  3. OMNIPAQUE [Suspect]
     Active Substance: IOHEXOL
     Indication: Computerised tomogram
     Dosage: UNK, SINGLE
     Route: 042
     Dates: start: 202201, end: 202201
  4. OMNIPAQUE [Suspect]
     Active Substance: IOHEXOL
     Indication: Hernia
  5. LOSARTAN [Concomitant]
     Active Substance: LOSARTAN
     Indication: Hypertension
     Route: 065
  6. FINASTERIDE [Concomitant]
     Active Substance: FINASTERIDE
     Indication: Benign prostatic hyperplasia
     Route: 065

REACTIONS (3)
  - Frequent bowel movements [Recovered/Resolved]
  - Flatulence [Recovering/Resolving]
  - Abdominal pain [Recovering/Resolving]

NARRATIVE: CASE EVENT DATE: 20220101
